FAERS Safety Report 5204019-2 (Version None)
Quarter: 2007Q1

REPORT INFORMATION
  Report Type: 
  Country: None (occurrence: None)
  Receive Date: 20070110
  Receipt Date: 20051130
  Transmission Date: 20070707
  Serious: No
  Sender: FDA-Public Use
  Company Number: US-BRISTOL-MYERS SQUIBB COMPANY-13112149

PATIENT
  Age: 4 Decade
  Sex: Male

DRUGS (5)
  1. ABILIFY [Suspect]
     Indication: DEPRESSION
     Dosage: 10 MG OR 15 MG (DOSE WAS NOT CERTAIN) DAILY FOR 3 MONTHS; DISCONTINUED 2 MONTHS AGO.
     Route: 048
     Dates: start: 20050101, end: 20050701
  2. ABILIFY [Suspect]
     Indication: PSYCHOTIC DISORDER
     Dosage: 10 MG OR 15 MG (DOSE WAS NOT CERTAIN) DAILY FOR 3 MONTHS; DISCONTINUED 2 MONTHS AGO.
     Route: 048
     Dates: start: 20050101, end: 20050701
  3. CYMBALTA [Concomitant]
  4. RISPERDAL [Concomitant]
     Dosage: TERMINATED WHILE ON ARIPIPRAZOLE
  5. BENZODIAZEPINES [Concomitant]
     Dosage: ^POSSIBLY^; CURRENTLY NOT BEING TAKEN

REACTIONS (2)
  - DRUG INEFFECTIVE [None]
  - DYSKINESIA [None]
